FAERS Safety Report 20223719 (Version 1)
Quarter: 2021Q4

REPORT INFORMATION
  Report Type: Spontaneous
  Country: FR (occurrence: FR)
  Receive Date: 20211223
  Receipt Date: 20211223
  Transmission Date: 20220303
  Serious: Yes (Life-Threatening, Hospitalization)
  Sender: FDA-Public Use
  Company Number: None

PATIENT
  Age: 80 Year
  Sex: Male
  Weight: 89 kg

DRUGS (8)
  1. GENTAMICIN [Suspect]
     Active Substance: GENTAMICIN
     Indication: Endocarditis
     Route: 065
     Dates: start: 20211119, end: 20211129
  2. GENTAMICIN [Suspect]
     Active Substance: GENTAMICIN
     Indication: Arthritis bacterial
  3. RIFAMPIN [Suspect]
     Active Substance: RIFAMPIN
     Indication: Arthritis bacterial
     Route: 065
     Dates: start: 20211119, end: 20211129
  4. RIFAMPIN [Suspect]
     Active Substance: RIFAMPIN
     Indication: Endocarditis
  5. TARGOCID [Suspect]
     Active Substance: TEICOPLANIN
     Indication: Arthritis bacterial
     Route: 065
     Dates: start: 20211109, end: 20211129
  6. TARGOCID [Suspect]
     Active Substance: TEICOPLANIN
     Indication: Endocarditis
  7. WARFARINE DEANOL [Concomitant]
     Indication: Atrial fibrillation
     Dates: start: 20211119
  8. ALLOPURINOL [Concomitant]
     Active Substance: ALLOPURINOL
     Indication: Gout
     Dates: start: 20211118

REACTIONS (1)
  - Acute kidney injury [Not Recovered/Not Resolved]

NARRATIVE: CASE EVENT DATE: 20211124
